FAERS Safety Report 17441528 (Version 1)
Quarter: 2020Q1

REPORT INFORMATION
  Report Type: Report from Study
  Country: IN (occurrence: IN)
  Receive Date: 20200220
  Receipt Date: 20200220
  Transmission Date: 20200409
  Serious: Yes (Hospitalization, Other)
  Sender: FDA-Public Use
  Company Number: IN-JNJFOC-20200219562

PATIENT

DRUGS (3)
  1. RAMELTEON [Suspect]
     Active Substance: RAMELTEON
     Indication: CIRCADIAN RHYTHM SLEEP DISORDER
     Dosage: 30 MINS BEFORE BEDTIME
     Route: 065
  2. HALOPIDOL (HALOPERIDOL) [Suspect]
     Active Substance: HALOPERIDOL
     Indication: SCHIZOPHRENIA
     Route: 065
  3. RISPERDAL [Suspect]
     Active Substance: RISPERIDONE
     Indication: SCHIZOPHRENIA
     Route: 065

REACTIONS (5)
  - Somnolence [Unknown]
  - Extrapyramidal disorder [Unknown]
  - Adverse event [Unknown]
  - Akathisia [Unknown]
  - Anticholinergic syndrome [Unknown]
